FAERS Safety Report 19567167 (Version 1)
Quarter: 2021Q3

REPORT INFORMATION
  Report Type: Spontaneous
  Country: US (occurrence: US)
  Receive Date: 20210716
  Receipt Date: 20210716
  Transmission Date: 20211014
  Serious: Yes (Other)
  Sender: FDA-Public Use
  Company Number: US-MYLANLABS-2021M1042226

PATIENT
  Age: 71 Year
  Sex: Male

DRUGS (4)
  1. PRALATREXATE [Suspect]
     Active Substance: PRALATREXATE
     Indication: CUTANEOUS T-CELL LYMPHOMA
     Dosage: UNK
     Route: 065
  2. BRENTUXIMAB [Concomitant]
     Active Substance: BRENTUXIMAB VEDOTIN
     Indication: CUTANEOUS T-CELL LYMPHOMA
     Dosage: 1.8 MILLIGRAM/KILOGRAM
  3. GEMCITABINE. [Suspect]
     Active Substance: GEMCITABINE
     Indication: CUTANEOUS T-CELL LYMPHOMA
     Dosage: UNK
     Route: 065
  4. IMIQUIMOD. [Suspect]
     Active Substance: IMIQUIMOD
     Indication: CUTANEOUS T-CELL LYMPHOMA
     Dosage: UNK
     Route: 061

REACTIONS (1)
  - Drug ineffective [Unknown]
